FAERS Safety Report 10804052 (Version 1)
Quarter: 2015Q1

REPORT INFORMATION
  Report Type: Spontaneous
  Country: US (occurrence: US)
  Receive Date: 20150217
  Receipt Date: 20150217
  Transmission Date: 20150721
  Serious: No
  Sender: FDA-Public Use
  Company Number: US-ELI_LILLY_AND_COMPANY-US201502002019

PATIENT
  Age: 67 Year
  Sex: Female

DRUGS (1)
  1. HUMALOG [Suspect]
     Active Substance: INSULIN LISPRO
     Indication: TYPE 2 DIABETES MELLITUS
     Dosage: UNK UNK, PRN
     Route: 065
     Dates: start: 201410

REACTIONS (5)
  - Glycosylated haemoglobin increased [Unknown]
  - Cough [Unknown]
  - Nasopharyngitis [Unknown]
  - Blood glucose decreased [Unknown]
  - Asthma [Unknown]

NARRATIVE: CASE EVENT DATE: 20150201
